FAERS Safety Report 7910624-2 (Version None)
Quarter: 2011Q4

REPORT INFORMATION
  Report Type: 
  Country: None (occurrence: None)
  Receive Date: 20111111
  Receipt Date: 20111109
  Transmission Date: 20120403
  Serious: Yes (Hospitalization, Other)
  Sender: FDA-Public Use
  Company Number: JP-PFIZER INC-2011252654

PATIENT
  Age: 73 Year
  Sex: Female
  Weight: 50 kg

DRUGS (5)
  1. FERROUS CITRATE [Concomitant]
     Dosage: 100 MG, 2X/DAY
  2. CORTRIL [Suspect]
     Indication: ISOLATED ADRENOCORTICOTROPIC HORMONE DEFICIENCY
     Dosage: 15 MG, DAILY
     Route: 048
  3. ALLEGRA [Concomitant]
     Dosage: 60 MG, 2X/DAY
  4. LANSOPRAZOLE [Concomitant]
     Dosage: 15 MG, 1X/DAY
  5. CORTRIL [Suspect]
     Dosage: 30 MG, DAILY
     Route: 048
     Dates: start: 20110920

REACTIONS (3)
  - SURGERY [None]
  - PANCREATITIS ACUTE [None]
  - PYREXIA [None]
